FAERS Safety Report 5645558-X (Version None)
Quarter: 2008Q1

REPORT INFORMATION
  Report Type: 
  Country: None (occurrence: None)
  Receive Date: 20080229
  Receipt Date: 20080220
  Transmission Date: 20080703
  Serious: Yes (Death, Life-Threatening, Hospitalization)
  Sender: FDA-Public Use
  Company Number: DE-WYE-H02729408

PATIENT
  Sex: Male

DRUGS (36)
  1. PANTOZOL [Suspect]
     Dosage: ^2/DAY 1 DF^
     Route: 048
     Dates: start: 20040623, end: 20040726
  2. DECORTIN [Suspect]
     Indication: ACUTE MYELOID LEUKAEMIA
     Dosage: UNKNOWN
     Route: 048
     Dates: start: 20040625, end: 20040627
  3. KALIUM-DURILES [Suspect]
     Dosage: ^3/DAY 2 DF^
     Route: 048
     Dates: start: 20040623
  4. METOPROLOL SUCCINATE [Suspect]
     Indication: ESSENTIAL HYPERTENSION
     Route: 048
     Dates: start: 20040702, end: 20040711
  5. METOPROLOL SUCCINATE [Suspect]
     Route: 048
     Dates: start: 20040724, end: 20040727
  6. PASPERTIN [Suspect]
     Indication: NAUSEA
     Dosage: ^DF^
     Route: 048
     Dates: start: 20040716, end: 20040719
  7. PASPERTIN [Suspect]
     Indication: VOMITING
     Dosage: ^DF^
     Route: 048
     Dates: start: 20040721, end: 20040721
  8. PASPERTIN [Suspect]
     Dosage: ^2/DAY 1 DF^
     Route: 048
     Dates: start: 20040722
  9. SODIUM CHLORIDE INJ [Suspect]
     Dosage: ^ML^
     Route: 042
     Dates: start: 20040723, end: 20040727
  10. GLUCOSE [Suspect]
     Dosage: ^ML^
     Route: 042
     Dates: start: 20040724, end: 20040727
  11. RIFAMPICIN [Suspect]
     Indication: SEPSIS
     Dosage: ^DF^
     Route: 042
     Dates: start: 20040723, end: 20040726
  12. ULCOGANT [Suspect]
     Dosage: ^DF^
     Route: 048
     Dates: start: 20040624, end: 20040710
  13. DIFLUCAN [Suspect]
     Indication: ORAL CANDIDIASIS
     Dosage: ^DF^
     Route: 048
     Dates: start: 20040625, end: 20040714
  14. FRAXIPARIN [Suspect]
     Indication: THROMBOSIS PROPHYLAXIS
     Dosage: ^DF^
     Route: 058
     Dates: start: 20040626, end: 20040717
  15. SOBELIN ^UPJOHN^ [Suspect]
     Indication: ARTHRITIS
     Dosage: ^3/DAY 1 DF^
     Route: 048
     Dates: start: 20040623, end: 20040725
  16. TAVANIC [Suspect]
     Indication: ARTHRITIS
     Route: 048
     Dates: start: 20040623, end: 20040725
  17. TRAMAL [Suspect]
     Indication: PAIN
     Dosage: ^2/DAY 1 DF^
     Dates: start: 20040623, end: 20040101
  18. TRAMAL [Suspect]
     Route: 048
     Dates: start: 20040101, end: 20040726
  19. TRAMAL [Suspect]
     Dosage: ^DF^
     Route: 042
     Dates: start: 20040725, end: 20040725
  20. AMPHO-MORONAL [Suspect]
  21. CALCIUM CARBONATE [Suspect]
     Route: 048
     Dates: start: 20040702, end: 20040727
  22. VIGANTOLETTEN [Suspect]
     Route: 048
     Dates: start: 20040703, end: 20040706
  23. OSPUR D3 [Suspect]
     Route: 048
     Dates: start: 20040707, end: 20040710
  24. URSO FALK [Suspect]
     Indication: GASTROOESOPHAGEAL REFLUX PROPHYLAXIS
     Dosage: ^3/DAY 1 DF^
     Route: 048
     Dates: start: 20040707, end: 20040727
  25. EUSAPRIM [Suspect]
     Indication: ARTHRITIS
     Route: 048
     Dates: start: 20040707, end: 20040727
  26. BEN-U-RON [Suspect]
     Indication: PYREXIA
     Route: 048
     Dates: start: 20040716, end: 20040717
  27. BEN-U-RON [Suspect]
     Route: 048
     Dates: start: 20040720, end: 20040720
  28. BEN-U-RON [Suspect]
     Route: 048
     Dates: start: 20040723, end: 20040725
  29. MIDAZOLAM HCL [Suspect]
     Indication: ANXIETY DISORDER
     Dosage: ^DF^
     Route: 042
     Dates: start: 20040719, end: 20040719
  30. RULID [Suspect]
     Indication: PYREXIA
     Route: 048
     Dates: start: 20040719, end: 20040726
  31. VERGENTAN [Suspect]
     Dosage: ^DF^
     Route: 042
     Dates: start: 20040724, end: 20040727
  32. THOMAEJONIN [Suspect]
     Dosage: ^DF^
     Route: 042
     Dates: start: 20040724, end: 20040727
  33. NOVALGIN [Suspect]
     Indication: PAIN
     Dosage: ^DF^
     Route: 042
     Dates: start: 20040725, end: 20040725
  34. MERONEM [Suspect]
     Dosage: ^DF^
     Route: 042
     Dates: start: 20040725, end: 20040727
  35. DRIDASE [Suspect]
     Indication: UROGENITAL DISORDER
     Dosage: ^DF^
     Route: 048
     Dates: start: 20040726, end: 20040727
  36. OTRIVEN [Suspect]
     Indication: NASAL DISORDER
     Dosage: ^3/DAY 1 DF^
     Dates: start: 20040720, end: 20040727

REACTIONS (2)
  - STEVENS-JOHNSON SYNDROME [None]
  - TOXIC EPIDERMAL NECROLYSIS [None]
